FAERS Safety Report 8887147 (Version 1)
Quarter: 2012Q4

REPORT INFORMATION
  Report Type: 
  Country: IT (occurrence: IT)
  Receive Date: 20121105
  Receipt Date: 20121105
  Transmission Date: 20130627
  Serious: Yes (Other)
  Sender: FDA-Public Use
  Company Number: IT-ELI_LILLY_AND_COMPANY-IT201210002964

PATIENT
  Age: 62 Year
  Sex: Male

DRUGS (2)
  1. ALIMTA [Suspect]
     Indication: LUNG ADENOCARCINOMA STAGE IV
     Dosage: 500 ug/m2, unknown
     Route: 042
     Dates: start: 20120117, end: 20120117
  2. CISPLATIN [Concomitant]
     Dosage: 90 mg, UNK
     Dates: start: 20120117, end: 20120117

REACTIONS (3)
  - Haemolysis [Unknown]
  - Liver function test abnormal [Unknown]
  - Thrombocytopenia [Unknown]
